FAERS Safety Report 18135945 (Version 1)
Quarter: 2020Q3

REPORT INFORMATION
  Report Type: Report from Study
  Country: None (occurrence: US)
  Receive Date: 20200811
  Receipt Date: 20200811
  Transmission Date: 20201103
  Serious: Yes (Other)
  Sender: FDA-Public Use
  Company Number: US-ABBVIE-20K-163-3512444-00

PATIENT
  Sex: Female
  Weight: 90.8 kg

DRUGS (2)
  1. SKYRIZI [Suspect]
     Active Substance: RISANKIZUMAB-RZAA
     Indication: PSORIASIS
     Dosage: ON WEEK 4 AND THEN EVERY 12 WEEKS
     Route: 058
     Dates: start: 20191106
  2. SKYRIZI [Suspect]
     Active Substance: RISANKIZUMAB-RZAA
     Route: 058

REACTIONS (5)
  - Pruritus [Unknown]
  - Joint swelling [Unknown]
  - Arthropathy [Unknown]
  - Peripheral venous disease [Unknown]
  - Self-consciousness [Unknown]
